FAERS Safety Report 10497175 (Version 1)
Quarter: 2014Q3

REPORT INFORMATION
  Report Type: Spontaneous
  Country: US (occurrence: None)
  Receive Date: 20140815
  Receipt Date: 20140815
  Transmission Date: 20150326
  Serious: Yes (Other)
  Sender: FDA-Public Use
  Company Number: ADR-2014-00807

PATIENT
  Age: 63 Year
  Sex: Female

DRUGS (1)
  1. BACLOFEN INTRATHECAL [Suspect]
     Active Substance: BACLOFEN
     Indication: MUSCLE SPASTICITY

REACTIONS (7)
  - Mental status changes [None]
  - Paraesthesia [None]
  - Agitation [None]
  - Drug withdrawal syndrome [None]
  - Pain [None]
  - Hyperhidrosis [None]
  - Muscular weakness [None]
